FAERS Safety Report 8488939-1 (Version None)
Quarter: 2012Q3

REPORT INFORMATION
  Report Type: 
  Country: None (occurrence: None)
  Receive Date: 20120705
  Receipt Date: 20120625
  Transmission Date: 20120928
  Serious: Yes (Other)
  Sender: FDA-Public Use
  Company Number: US-ASTRAZENECA-2011SE09914

PATIENT
  Age: 44 Year
  Sex: Male

DRUGS (3)
  1. NEXIUM [Suspect]
     Route: 048
  2. PRILOSEC OTC [Suspect]
     Route: 048
  3. PRILOSEC [Suspect]
     Route: 048

REACTIONS (13)
  - CERVICAL VERTEBRAL FRACTURE [None]
  - CEREBRAL HAEMATOMA [None]
  - DRUG INEFFECTIVE [None]
  - BRAIN INJURY [None]
  - APHAGIA [None]
  - ROAD TRAFFIC ACCIDENT [None]
  - BACK PAIN [None]
  - GASTROOESOPHAGEAL REFLUX DISEASE [None]
  - AMNESIA [None]
  - DYSPEPSIA [None]
  - DRUG DOSE OMISSION [None]
  - HEAD INJURY [None]
  - NEPHROLITHIASIS [None]
